FAERS Safety Report 9271168 (Version 5)
Quarter: 2013Q2

REPORT INFORMATION
  Report Type: Spontaneous
  Country: US (occurrence: US)
  Receive Date: 20130506
  Receipt Date: 20130521
  Transmission Date: 20140414
  Serious: Yes (Life-Threatening, Hospitalization)
  Sender: FDA-Public Use
  Company Number: US-JNJFOC-20130500875

PATIENT
  Age: 77 Year
  Sex: Female
  Weight: 58 kg

DRUGS (9)
  1. XARELTO [Suspect]
     Indication: CEREBROVASCULAR ACCIDENT PROPHYLAXIS
     Route: 048
     Dates: start: 20130221, end: 20130303
  2. XARELTO [Suspect]
     Indication: ATRIAL FIBRILLATION
     Route: 048
     Dates: start: 20130221, end: 20130303
  3. WARFARIN [Suspect]
     Indication: ATRIAL FIBRILLATION
     Route: 065
     Dates: start: 20130118, end: 20130220
  4. ASPIRIN [Suspect]
     Indication: PRODUCT USED FOR UNKNOWN INDICATION
     Route: 048
  5. PREMARIN [Concomitant]
     Route: 048
  6. LOSARTAN [Concomitant]
     Dosage: 50
     Route: 048
  7. HCTZ [Concomitant]
     Dosage: 12.5
     Route: 048
  8. APRISO [Concomitant]
     Dosage: TWO TABLETS, TWICE
     Route: 048
  9. FISH OIL [Concomitant]
     Route: 065

REACTIONS (2)
  - Chronic gastrointestinal bleeding [Recovering/Resolving]
  - Anaemia [Recovering/Resolving]
